FAERS Safety Report 23985669 (Version 1)
Quarter: 2024Q2

REPORT INFORMATION
  Report Type: Report from Study
  Country: US (occurrence: US)
  Receive Date: 20240618
  Receipt Date: 20240618
  Transmission Date: 20240715
  Serious: Yes (Hospitalization)
  Sender: FDA-Public Use
  Company Number: US-OTSUKA-2024_016825

PATIENT
  Sex: Male
  Weight: 117.48 kg

DRUGS (3)
  1. CEDAZURIDINE\DECITABINE [Suspect]
     Active Substance: CEDAZURIDINE\DECITABINE
     Indication: Myelodysplastic syndrome
     Dosage: 1 DF(35 MG OF DECITABINE AND 100 MG OF CEDAZURIDINE), QD ON DAYS 1-5 EVERY 28 DAYS
     Route: 048
     Dates: start: 202303
  2. ABIRATERONE [Concomitant]
     Active Substance: ABIRATERONE
     Indication: Product used for unknown indication
     Dosage: UNK
     Route: 065
  3. PREDNISONE [Concomitant]
     Active Substance: PREDNISONE
     Indication: Product used for unknown indication
     Dosage: UNK
     Route: 065

REACTIONS (3)
  - Full blood count abnormal [Unknown]
  - Loss of consciousness [Unknown]
  - Pyrexia [Unknown]
